FAERS Safety Report 4397946-X (Version None)
Quarter: 2004Q3

REPORT INFORMATION
  Report Type: 
  Country: None (occurrence: None)
  Receive Date: 20040713
  Receipt Date: 20040629
  Transmission Date: 20050211
  Serious: Yes (Hospitalization)
  Sender: FDA-Public Use
  Company Number: 430007M04FRA

PATIENT
  Age: 50 Year
  Sex: Female

DRUGS (3)
  1. NOVANTRONE [Suspect]
     Indication: BREAST CANCER
     Dosage: 10 MG/M2, 1 IN 1 CYCLE, INTRAVENOUS
     Route: 042
     Dates: start: 20011001, end: 20020401
  2. FLUOROURACIL [Suspect]
     Indication: BREAST CANCER
     Dosage: 500 MG/M2,  1 IN 1 CYCLE, INTRAVENOUS
     Route: 042
     Dates: start: 20011001, end: 20020401
  3. CYCLOPHOSPHAMIDE [Suspect]
     Indication: BREAST CANCER
     Dosage: 750 MG/M2, 1 IN 1 CYCLE, INTRAVENOUS
     Route: 042
     Dates: start: 20011001, end: 20020401

REACTIONS (2)
  - ACUTE PROMYELOCYTIC LEUKAEMIA [None]
  - PANCYTOPENIA [None]
